FAERS Safety Report 21642948 (Version 1)
Quarter: 2022Q4

REPORT INFORMATION
  Report Type: Report from Study
  Country: CA (occurrence: CA)
  Receive Date: 20221125
  Receipt Date: 20221125
  Transmission Date: 20230113
  Serious: Yes (Other)
  Sender: FDA-Public Use
  Company Number: CA-JNJFOC-20221153936

PATIENT
  Age: 18 Year
  Sex: Male
  Weight: 58 kg

DRUGS (1)
  1. REMICADE [Suspect]
     Active Substance: INFLIXIMAB
     Indication: Crohn^s disease
     Route: 042
     Dates: start: 20191108

REACTIONS (4)
  - Syncope [Unknown]
  - Staphylococcal infection [Recovered/Resolved]
  - Concussion [Unknown]
  - Head injury [Unknown]

NARRATIVE: CASE EVENT DATE: 20221101
